FAERS Safety Report 7648777-6 (Version None)
Quarter: 2011Q3

REPORT INFORMATION
  Report Type: 
  Country: None (occurrence: None)
  Receive Date: 20110801
  Receipt Date: 20110728
  Transmission Date: 20111222
  Serious: Yes (Death)
  Sender: FDA-Public Use
  Company Number: PHHY2011US68268

PATIENT
  Sex: Male

DRUGS (6)
  1. ENSURE [Concomitant]
  2. FOLIC ACID [Concomitant]
  3. GLEEVEC [Suspect]
     Dosage: 400 MG, DAILY
     Route: 048
  4. PROZAC [Concomitant]
  5. CALCIUM ACETATE [Concomitant]
  6. PROCHLORPERAZINE [Concomitant]

REACTIONS (1)
  - DEATH [None]
